FAERS Safety Report 11250399 (Version 1)
Quarter: 2015Q3

REPORT INFORMATION
  Report Type: Spontaneous
  Country: US (occurrence: US)
  Receive Date: 20150708
  Receipt Date: 20150708
  Transmission Date: 20151125
  Serious: No
  Sender: FDA-Public Use
  Company Number: US-ELI_LILLY_AND_COMPANY-US201003004918

PATIENT
  Age: 55 Year
  Sex: Male

DRUGS (3)
  1. GLUCAGON. [Suspect]
     Active Substance: GLUCAGON
     Indication: DIABETES MELLITUS
     Dosage: UNK, AS NEEDED
  2. GLUCAGON. [Suspect]
     Active Substance: GLUCAGON
  3. GLUCAGON. [Suspect]
     Active Substance: GLUCAGON

REACTIONS (2)
  - Poor quality drug administered [Recovered/Resolved]
  - Drug ineffective [Recovered/Resolved]
